FAERS Safety Report 8930603 (Version 3)
Quarter: 2014Q2

REPORT INFORMATION
  Report Type: Report from Study
  Country: AU (occurrence: AU)
  Receive Date: 20121128
  Receipt Date: 20140606
  Transmission Date: 20141212
  Serious: Yes (Disabling)
  Sender: FDA-Public Use
  Company Number: AU-ROCHE-1159831

PATIENT
  Sex: Male

DRUGS (10)
  1. METHOXY POLYETHYLENE GLYCOL-EPOETIN BETA [Suspect]
     Indication: NEPHROGENIC ANAEMIA
     Route: 058
     Dates: start: 20120131
  2. ASTRIX [Concomitant]
  3. COVERSYL [Concomitant]
  4. CRESTOR [Concomitant]
  5. LASIX [Concomitant]
  6. MINIPRESS [Concomitant]
  7. NORVASC [Concomitant]
  8. CALCITRIOL [Concomitant]
     Route: 065
  9. BISOPROLOL [Concomitant]
  10. DIAMICRON [Concomitant]

REACTIONS (1)
  - Blood iron decreased [Unknown]
